FAERS Safety Report 11001878 (Version 2)
Quarter: 2015Q2

REPORT INFORMATION
  Report Type: Spontaneous
  Country: CN (occurrence: CN)
  Receive Date: 20150408
  Receipt Date: 20150421
  Transmission Date: 20150821
  Serious: No
  Sender: FDA-Public Use
  Company Number: CN-ELI_LILLY_AND_COMPANY-CN201503009762

PATIENT
  Age: 4 Year
  Weight: 15 kg

DRUGS (2)
  1. CECLOR [Suspect]
     Active Substance: CEFACLOR
     Indication: PYREXIA
     Dosage: UNK, TID
     Route: 048
     Dates: start: 20150325
  2. CECLOR [Suspect]
     Active Substance: CEFACLOR
     Indication: NASOPHARYNGITIS

REACTIONS (1)
  - Cough [Unknown]
